FAERS Safety Report 7465075-4 (Version None)
Quarter: 2011Q2

REPORT INFORMATION
  Report Type: 
  Country: None (occurrence: None)
  Receive Date: 20110505
  Receipt Date: 20110505
  Transmission Date: 20111010
  Serious: Yes (Other)
  Sender: FDA-Public Use
  Company Number: None

PATIENT
  Age: 56 Year
  Sex: Female
  Weight: 65.7716 kg

DRUGS (2)
  1. ABRAXANE [Suspect]
     Indication: LUNG NEOPLASM MALIGNANT
     Dosage: 175MG WEEKLY IV
     Route: 042
     Dates: start: 20110415, end: 20110422
  2. ABRAXANE [Suspect]
     Indication: DISEASE PROGRESSION
     Dosage: 175MG WEEKLY IV
     Route: 042
     Dates: start: 20110415, end: 20110422

REACTIONS (2)
  - RASH PRURITIC [None]
  - INSOMNIA [None]
